FAERS Safety Report 7131134-9 (Version None)
Quarter: 2010Q4

REPORT INFORMATION
  Report Type: 
  Country: None (occurrence: None)
  Receive Date: 20101124
  Receipt Date: 20101124
  Transmission Date: 20110411
  Serious: No
  Sender: FDA-Public Use
  Company Number: None

PATIENT
  Age: 56 Year
  Sex: Male
  Weight: 126.5536 kg

DRUGS (1)
  1. CARIMUNE NF [Suspect]
     Indication: IDIOPATHIC THROMBOCYTOPENIC PURPURA
     Dosage: 120G Q24H IV
     Route: 042
     Dates: start: 20101104, end: 20101107

REACTIONS (1)
  - RENAL FAILURE ACUTE [None]
